FAERS Safety Report 4620908-1 (Version None)
Quarter: 2005Q1

REPORT INFORMATION
  Report Type: 
  Country: None (occurrence: None)
  Receive Date: 20050325
  Receipt Date: 20050315
  Transmission Date: 20050727
  Serious: Yes (Hospitalization)
  Sender: FDA-Public Use
  Company Number: 2005-126333-NL

PATIENT
  Age: 33 Year
  Sex: Female

DRUGS (3)
  1. MENOTROPINS [Suspect]
  2. CHORIONIC GONADOTROPIN [Suspect]
  3. CLOMIPHENE [Suspect]

REACTIONS (8)
  - ABDOMINAL PAIN LOWER [None]
  - ABORTION THREATENED [None]
  - ANAEMIA [None]
  - COMPLICATIONS OF MATERNAL EXPOSURE TO THERAPEUTIC DRUGS [None]
  - ECTOPIC PREGNANCY [None]
  - SWELLING [None]
  - UTERINE DISORDER [None]
  - UTERINE HAEMORRHAGE [None]
